FAERS Safety Report 9251003 (Version 1)
Quarter: 2013Q2

REPORT INFORMATION
  Report Type: Spontaneous
  Country: FR (occurrence: FR)
  Receive Date: 20130424
  Receipt Date: 20130424
  Transmission Date: 20140414
  Serious: Yes (Disabling)
  Sender: FDA-Public Use
  Company Number: FR-SANOFI-AVENTIS-2013SA041076

PATIENT
  Age: 66 Year
  Sex: Male

DRUGS (13)
  1. LOVENOX [Suspect]
     Indication: PRODUCT USED FOR UNKNOWN INDICATION
     Route: 042
     Dates: start: 20121114, end: 20121115
  2. LYRICA [Suspect]
     Indication: PRODUCT USED FOR UNKNOWN INDICATION
     Route: 065
     Dates: start: 20121115, end: 20121118
  3. IPRATROPIUM ARROW [Suspect]
     Indication: PRODUCT USED FOR UNKNOWN INDICATION
     Route: 055
     Dates: end: 20121118
  4. HEPARIN SODIUM PANPHARMA [Suspect]
     Indication: PRODUCT USED FOR UNKNOWN INDICATION
     Route: 042
     Dates: start: 20121113, end: 20121113
  5. SYMBICORT TURBUHALER [Concomitant]
  6. INEXIUM [Concomitant]
  7. ISOPTINE [Concomitant]
  8. LEXOMIL [Concomitant]
  9. LIPANTHYL [Concomitant]
  10. PULMICORT [Concomitant]
  11. KARDEGIC [Concomitant]
  12. TOPALGIC [Concomitant]
  13. AMIODARONE [Concomitant]
     Indication: TACHYCARDIA
     Dates: start: 201211

REACTIONS (1)
  - Colitis ischaemic [Recovered/Resolved with Sequelae]
